FAERS Safety Report 24340968 (Version 4)
Quarter: 2025Q1

REPORT INFORMATION
  Report Type: Report from Study
  Country: US (occurrence: US)
  Receive Date: 20240919
  Receipt Date: 20250302
  Transmission Date: 20250408
  Serious: No
  Sender: SANDOZ
  Company Number: US-002147023-NVSC2023US013740

PATIENT
  Age: 9 Year
  Sex: Male
  Weight: 29.5 kg

DRUGS (6)
  1. OMNITROPE [Suspect]
     Active Substance: SOMATROPIN
     Indication: Growth hormone deficiency
     Dosage: 1.2 MG, QD
     Route: 058
     Dates: start: 20230115
  2. OMNITROPE [Suspect]
     Active Substance: SOMATROPIN
     Indication: Growth hormone deficiency
     Dosage: 1.2 MG, QD
     Route: 058
     Dates: start: 20230115
  3. OMNITROPE [Suspect]
     Active Substance: SOMATROPIN
     Dosage: 1.6 MG, QD
     Route: 058
  4. OMNITROPE [Suspect]
     Active Substance: SOMATROPIN
     Dosage: 1.6 MG, QD
     Route: 058
  5. OMNITROPE [Suspect]
     Active Substance: SOMATROPIN
     Dosage: 10 MG, QD
     Route: 030
     Dates: start: 20230304
  6. OMNITROPE [Suspect]
     Active Substance: SOMATROPIN
     Dosage: 10 MG, QD
     Route: 030
     Dates: start: 20230304

REACTIONS (4)
  - Injection site pain [Not Recovered/Not Resolved]
  - Drug ineffective [Unknown]
  - Incorrect dose administered [Not Recovered/Not Resolved]
  - Device breakage [Unknown]

NARRATIVE: CASE EVENT DATE: 20230115
